FAERS Safety Report 15681000 (Version 1)
Quarter: 2018Q4

REPORT INFORMATION
  Report Type: Spontaneous
  Country: US (occurrence: US)
  Receive Date: 20181201
  Receipt Date: 20181201
  Transmission Date: 20190205
  Serious: Yes (Hospitalization)
  Sender: FDA-Public Use
  Company Number: None

PATIENT
  Age: 21 Year
  Sex: Female

DRUGS (1)
  1. SKYLA [Suspect]
     Active Substance: LEVONORGESTREL

REACTIONS (6)
  - Abdominal pain [None]
  - Device dislocation [None]
  - Pain in extremity [None]
  - Device issue [None]
  - Menorrhagia [None]
  - Ovarian cyst [None]

NARRATIVE: CASE EVENT DATE: 20150813
